FAERS Safety Report 12924255 (Version 1)
Quarter: 2016Q4

REPORT INFORMATION
  Report Type: Spontaneous
  Country: GB (occurrence: GB)
  Receive Date: 20161109
  Receipt Date: 20161109
  Transmission Date: 20170207
  Serious: Yes (Disabling, Other)
  Sender: FDA-Public Use
  Company Number: GB-ASTRAZENECA-2016SF15365

PATIENT
  Age: 70 Year
  Sex: Male

DRUGS (1)
  1. BICALUTAMIDE. [Suspect]
     Active Substance: BICALUTAMIDE
     Indication: PROSTATE CANCER
     Route: 048

REACTIONS (9)
  - Dehydration [Not Recovered/Not Resolved]
  - Nausea [Not Recovered/Not Resolved]
  - Diarrhoea [Not Recovered/Not Resolved]
  - Somnolence [Not Recovered/Not Resolved]
  - Disorientation [Not Recovered/Not Resolved]
  - Asthenia [Not Recovered/Not Resolved]
  - Feeding disorder [Unknown]
  - Pain in extremity [Not Recovered/Not Resolved]
  - Hot flush [Not Recovered/Not Resolved]
